FAERS Safety Report 19342613 (Version 1)
Quarter: 2021Q2

REPORT INFORMATION
  Report Type: Spontaneous
  Country: US (occurrence: US)
  Receive Date: 20210530
  Receipt Date: 20210530
  Transmission Date: 20210717
  Serious: Yes (Death, Other)
  Sender: FDA-Public Use
  Company Number: US-PURDUE-USA-2020-0205273

PATIENT
  Age: 18 Year
  Sex: Male

DRUGS (4)
  1. DARVOCET [Suspect]
     Active Substance: ACETAMINOPHEN\PROPOXYPHENE HYDROCHLORIDE
     Indication: LIMB INJURY
     Dosage: UNK
     Route: 065
     Dates: start: 2009
  2. SUBOXONE [Suspect]
     Active Substance: BUPRENORPHINE HYDROCHLORIDE\NALOXONE HYDROCHLORIDE
     Indication: PRODUCT USED FOR UNKNOWN INDICATION
     Dosage: UNK
     Route: 065
  3. OXYCONTIN [Suspect]
     Active Substance: OXYCODONE HYDROCHLORIDE
     Indication: PRODUCT USED FOR UNKNOWN INDICATION
     Dosage: UNK
     Route: 048
  4. PROPOXYPHENE. [Suspect]
     Active Substance: PROPOXYPHENE
     Indication: PRODUCT USED FOR UNKNOWN INDICATION
     Dosage: UNK
     Route: 065

REACTIONS (9)
  - Personality change [Unknown]
  - Overdose [Unknown]
  - Anxiety [Unknown]
  - Drug dependence [Unknown]
  - Insomnia [Unknown]
  - Toxicity to various agents [Fatal]
  - Depressed mood [Unknown]
  - Affect lability [Unknown]
  - Fatigue [Unknown]

NARRATIVE: CASE EVENT DATE: 20091106
